FAERS Safety Report 15858461 (Version 2)
Quarter: 2019Q1

REPORT INFORMATION
  Report Type: Spontaneous
  Country: CN (occurrence: CN)
  Receive Date: 20190123
  Receipt Date: 20190221
  Transmission Date: 20190417
  Serious: Yes (Death, Hospitalization)
  Sender: FDA-Public Use
  Company Number: CN-ACTELION-A-CH2019-184964

PATIENT
  Age: 46 Year
  Sex: Male
  Weight: 51 kg

DRUGS (1)
  1. OPSUMIT [Suspect]
     Active Substance: MACITENTAN
     Indication: PULMONARY HYPERTENSION
     Dosage: 10 MG, QD
     Route: 048
     Dates: start: 20180716

REACTIONS (3)
  - Vascular rupture [Fatal]
  - Haemoptysis [Fatal]
  - Asphyxia [Fatal]

NARRATIVE: CASE EVENT DATE: 201901
